FAERS Safety Report 11068338 (Version 1)
Quarter: 2015Q2

REPORT INFORMATION
  Report Type: Report from Study
  Country: US (occurrence: US)
  Receive Date: 20150427
  Receipt Date: 20150427
  Transmission Date: 20150821
  Serious: Yes (Other)
  Sender: FDA-Public Use
  Company Number: US-ASTELLAS-2015US013652

PATIENT

DRUGS (2)
  1. ERLOTINIB [Suspect]
     Active Substance: ERLOTINIB
     Indication: BREAST CANCER
     Dosage: UNK, UNKNOWN FREQ.
     Route: 065
  2. TAXOTERE [Concomitant]
     Active Substance: DOCETAXEL
     Indication: PRODUCT USED FOR UNKNOWN INDICATION
     Dosage: UNK UNK, UNKNOWN FREQ.
     Route: 065

REACTIONS (15)
  - Dehydration [Recovered/Resolved]
  - Abdominal pain [None]
  - Epistaxis [None]
  - Lacrimation increased [None]
  - Dry skin [None]
  - Rash [None]
  - Proctitis [None]
  - Alopecia [None]
  - Tachycardia [None]
  - Diarrhoea [None]
  - Stomatitis [None]
  - Back pain [None]
  - Dysphagia [None]
  - Pruritus [None]
  - Dysgeusia [None]

NARRATIVE: CASE EVENT DATE: 20090608
